FAERS Safety Report 8301849-5 (Version None)
Quarter: 2012Q2

REPORT INFORMATION
  Report Type: 
  Country: None (occurrence: None)
  Receive Date: 20120417
  Receipt Date: 20120405
  Transmission Date: 20120825
  Serious: Yes (Hospitalization)
  Sender: FDA-Public Use
  Company Number: JPI-P-020692

PATIENT
  Age: 55 Year
  Sex: Female

DRUGS (2)
  1. XYREM [Suspect]
     Indication: FIBROMYALGIA
     Dosage: 6 GM (3 GM, 2 IN 1 D), ORAL, ORAL, 7.5 GM, 2 IN 1 D), ORAL
     Route: 048
     Dates: start: 20111220
  2. XYREM [Suspect]
     Indication: FIBROMYALGIA
     Dosage: 6 GM (3 GM, 2 IN 1 D), ORAL, ORAL, 7.5 GM, 2 IN 1 D), ORAL
     Route: 048
     Dates: start: 20100723

REACTIONS (3)
  - HIP ARTHROPLASTY [None]
  - VERTIGO [None]
  - CARDIAC MURMUR [None]
